FAERS Safety Report 5463801-7 (Version None)
Quarter: 2007Q3

REPORT INFORMATION
  Report Type: 
  Country: None (occurrence: None)
  Receive Date: 20070919
  Receipt Date: 20070911
  Transmission Date: 20080115
  Serious: Yes (Death, Hospitalization)
  Sender: FDA-Public Use
  Company Number: 163-21880-07090339

PATIENT
  Age: 67 Year
  Sex: Female
  Weight: 93.4 kg

DRUGS (18)
  1. REVLIMID [Suspect]
     Indication: ACUTE MYELOID LEUKAEMIA
     Dosage: 50 MG, QD X21 DAYS, ORAL
     Route: 048
     Dates: start: 20070815, end: 20070904
  2. PREDNISONE TAB [Concomitant]
  3. CIPRO [Concomitant]
  4. COMBIVENT [Concomitant]
  5. ACYCLOVIR [Concomitant]
  6. SALINE MOUTH RINSE               (SALINE MIXTURE) [Concomitant]
  7. ACETAMINOPHEN [Concomitant]
  8. CAMPHOR/MENTHOL                (CAMPHOR W/MENTHOL) [Concomitant]
  9. DIPHENHYDRAMINE HCL [Concomitant]
  10. LOPERAMIDE [Concomitant]
  11. MAALOX                       /DIPHEN/VISC LIDO [Concomitant]
  12. MAGNESIUM SULFATE [Concomitant]
  13. MINERAL OIL / PETROLATUM [Concomitant]
  14. POLYVINYL ALCOHOL                 (POLYVINYL ALCOHOL) [Concomitant]
  15. POTASSIUM CHLORIDE [Concomitant]
  16. KEFLEX [Concomitant]
  17. OXYCODONE HCL [Concomitant]
  18. LASIX [Concomitant]

REACTIONS (6)
  - ANURIA [None]
  - GENERAL PHYSICAL HEALTH DETERIORATION [None]
  - PANCYTOPENIA [None]
  - PNEUMONIA FUNGAL [None]
  - REFUSAL OF TREATMENT BY PATIENT [None]
  - RESPIRATORY DEPRESSION [None]
